FAERS Safety Report 11844838 (Version 1)
Quarter: 2015Q4

REPORT INFORMATION
  Report Type: Spontaneous
  Country: US (occurrence: None)
  Receive Date: 20151216
  Receipt Date: 20151216
  Transmission Date: 20160305
  Serious: Yes (Other)
  Sender: FDA-Public Use
  Company Number: None

PATIENT
  Age: 47 Year
  Sex: Male
  Weight: 81.65 kg

DRUGS (8)
  1. ILEVRO [Concomitant]
     Active Substance: NEPAFENAC
  2. PRED FORTE [Concomitant]
     Active Substance: PREDNISOLONE ACETATE
  3. PREDNISONE DOSE PACK [Concomitant]
  4. BESIVANCE [Concomitant]
     Active Substance: BESIFLOXACIN
  5. LOTEMOX [Concomitant]
  6. DUREZOL [Concomitant]
     Active Substance: DIFLUPREDNATE
  7. MITOMYCIN 0.02% SURGERY PHARMACY SERVICES [Suspect]
     Active Substance: MITOMYCIN
     Indication: PROPHYLAXIS
     Dosage: 13 SECONDS APPLICATION
     Route: 061
     Dates: start: 20150805
  8. PUNCTAL PLUGS [Concomitant]
     Active Substance: DEVICE

REACTIONS (3)
  - Photophobia [None]
  - Dry eye [None]
  - Corneal oedema [None]

NARRATIVE: CASE EVENT DATE: 20150805
